FAERS Safety Report 10695862 (Version 1)
Quarter: 2015Q1

REPORT INFORMATION
  Report Type: Spontaneous
  Country: US (occurrence: None)
  Receive Date: 20150106
  Receipt Date: 20150106
  Transmission Date: 20150721
  Serious: Yes (Life-Threatening, Hospitalization, Other)
  Sender: FDA-Public Use
  Company Number: None

PATIENT
  Age: 65 Year
  Sex: Male

DRUGS (1)
  1. LISINOPRIL. [Suspect]
     Active Substance: LISINOPRIL
     Dosage: 10 MG, EVERY DAY, PO
     Route: 048
     Dates: start: 20141114, end: 20141207

REACTIONS (3)
  - Respiratory distress [None]
  - Angioedema [None]
  - Dizziness [None]

NARRATIVE: CASE EVENT DATE: 20141207
